FAERS Safety Report 6958284 (Version 5)
Quarter: 2016Q1

REPORT INFORMATION
  Report Type: Spontaneous
  Country: US (occurrence: US)
  Receive Date: 20090401
  Receipt Date: 20160315
  Transmission Date: 20160526
  Serious: Yes (Hospitalization, Other)
  Sender: FDA-Public Use
  Company Number: US-PFIZER INC-2009186851

PATIENT
  Sex: Female
  Weight: 47.17 kg

DRUGS (19)
  1. HYDROCORTISONE. [Suspect]
     Active Substance: HYDROCORTISONE
     Indication: BLOOD CORTISOL ABNORMAL
     Dosage: UNK
     Dates: end: 200809
  2. HYDROCORTISONE. [Suspect]
     Active Substance: HYDROCORTISONE
     Indication: MENOPAUSE
  3. SEROQUEL [Concomitant]
     Active Substance: QUETIAPINE FUMARATE
     Indication: DYSTONIA
  4. BUPROPION XL [Concomitant]
     Active Substance: BUPROPION
     Indication: DEPRESSION
     Dosage: 300 MG, DAILY
  5. CORTEF [Suspect]
     Active Substance: HYDROCORTISONE
     Indication: BLOOD CORTISOL ABNORMAL
     Dosage: 15 MG, 2X/DAY
     Dates: start: 1999, end: 200809
  6. CORTISONE ACETATE. [Suspect]
     Active Substance: CORTISONE ACETATE
     Dosage: 25 MG, UNK
     Route: 048
  7. CORTISONE ACETATE. [Suspect]
     Active Substance: CORTISONE ACETATE
     Dosage: UNK
     Route: 048
     Dates: start: 2000
  8. CORTISONE ACETATE. [Suspect]
     Active Substance: CORTISONE ACETATE
     Dosage: 50 MG, 1X/DAY
     Route: 048
     Dates: start: 2008
  9. CORTISONE ACETATE. [Suspect]
     Active Substance: CORTISONE ACETATE
     Indication: ARTHRALGIA
     Dosage: INJECTION
     Route: 014
  10. CELECOXIB. [Suspect]
     Active Substance: CELECOXIB
     Dosage: 200 MG, 1X/DAY
  11. LORAZEPAM. [Concomitant]
     Active Substance: LORAZEPAM
     Indication: INSOMNIA
     Dosage: 0.5 MG, 2X/DAY
  12. CORTISONE ACETATE. [Suspect]
     Active Substance: CORTISONE ACETATE
     Indication: ADDISON^S DISEASE
     Dosage: 50 MG, UNK
     Route: 048
     Dates: start: 1998
  13. CORTISONE ACETATE. [Suspect]
     Active Substance: CORTISONE ACETATE
     Dosage: UNK
     Route: 048
     Dates: start: 1999
  14. LORAZEPAM. [Concomitant]
     Active Substance: LORAZEPAM
     Indication: ANXIETY
  15. LORAZEPAM. [Concomitant]
     Active Substance: LORAZEPAM
     Indication: DEPRESSION
  16. CORTEF [Suspect]
     Active Substance: HYDROCORTISONE
     Indication: ADDISON^S DISEASE
     Dosage: 60 MG, 2X/DAY
     Route: 048
     Dates: start: 1996
  17. CORTEF [Suspect]
     Active Substance: HYDROCORTISONE
     Indication: MENOPAUSE
  18. CORTISONE ACETATE. [Suspect]
     Active Substance: CORTISONE ACETATE
     Dosage: 10 MG, UNK
     Route: 048
  19. SEROQUEL [Concomitant]
     Active Substance: QUETIAPINE FUMARATE
     Indication: INSOMNIA
     Dosage: 200MG ONCE AT NIGHT

REACTIONS (36)
  - Blindness [Not Recovered/Not Resolved]
  - Hypersensitivity [Recovering/Resolving]
  - Toxoplasmosis [Not Recovered/Not Resolved]
  - Arthropathy [Not Recovered/Not Resolved]
  - Headache [Recovering/Resolving]
  - Deformity [Not Recovered/Not Resolved]
  - Intentional product use issue [Unknown]
  - Haemorrhage [Recovered/Resolved]
  - Joint swelling [Not Recovered/Not Resolved]
  - Heart rate increased [Recovered/Resolved]
  - Fibromyalgia [Unknown]
  - Middle insomnia [Recovered/Resolved]
  - Eye irritation [Recovering/Resolving]
  - Addison^s disease [Recovered/Resolved]
  - Dysuria [Unknown]
  - Lacrimation increased [Not Recovered/Not Resolved]
  - Gait disturbance [Unknown]
  - Epistaxis [Not Recovered/Not Resolved]
  - Chorioretinitis [Not Recovered/Not Resolved]
  - Rectal haemorrhage [Recovered/Resolved]
  - Bone disorder [Unknown]
  - Facial pain [Unknown]
  - Weight increased [Unknown]
  - Rash macular [Recovering/Resolving]
  - Corneal defect [Unknown]
  - Malaise [Not Recovered/Not Resolved]
  - Thyroid mass [Not Recovered/Not Resolved]
  - Skin discolouration [Not Recovered/Not Resolved]
  - Burning sensation [Recovering/Resolving]
  - Ocular hyperaemia [Recovering/Resolving]
  - Cataract [Not Recovered/Not Resolved]
  - Pain [Not Recovered/Not Resolved]
  - Oropharyngeal pain [Recovering/Resolving]
  - Arthralgia [Unknown]
  - Hand deformity [Not Recovered/Not Resolved]
  - Eye swelling [Not Recovered/Not Resolved]

NARRATIVE: CASE EVENT DATE: 1997
